FAERS Safety Report 7978608-6 (Version None)
Quarter: 2011Q4

REPORT INFORMATION
  Report Type: 
  Country: None (occurrence: None)
  Receive Date: 20111202
  Receipt Date: 20111125
  Transmission Date: 20120403
  Serious: Yes (Hospitalization)
  Sender: FDA-Public Use
  Company Number: 2011SP055240

PATIENT
  Age: 47 Year
  Sex: Female

DRUGS (1)
  1. DESOGESTREL AND ETHINYL ESTRADIOL [Suspect]
     Indication: ENDOMETRIOSIS
     Dosage: 1 DF;QD;PO
     Route: 048
     Dates: start: 20070710, end: 20111101

REACTIONS (3)
  - PULMONARY EMBOLISM [None]
  - THORACIC OUTLET SYNDROME [None]
  - DEEP VEIN THROMBOSIS [None]
